FAERS Safety Report 12554733 (Version 1)
Quarter: 2016Q3

REPORT INFORMATION
  Report Type: Spontaneous
  Country: GB (occurrence: GB)
  Receive Date: 20160713
  Receipt Date: 20160713
  Transmission Date: 20161109
  Serious: Yes (Other)
  Sender: FDA-Public Use
  Company Number: GB-ELI_LILLY_AND_COMPANY-GB201607002694

PATIENT
  Sex: Male

DRUGS (1)
  1. HUMULIN M3 (MIXTURE 30/70) [Suspect]
     Active Substance: INSULIN HUMAN
     Indication: PRODUCT USED FOR UNKNOWN INDICATION
     Dosage: 40 U, BID
     Route: 065

REACTIONS (5)
  - Lung disorder [Unknown]
  - Cerebrovascular accident [Unknown]
  - Back disorder [Unknown]
  - Liver disorder [Unknown]
  - Renal disorder [Unknown]
